FAERS Safety Report 20406217 (Version 1)
Quarter: 2022Q1

REPORT INFORMATION
  Report Type: Spontaneous
  Country: US (occurrence: US)
  Receive Date: 20220131
  Receipt Date: 20220131
  Transmission Date: 20220424
  Serious: No
  Sender: FDA-Public Use
  Company Number: US-TAKEDA-2022TUS006153

PATIENT
  Sex: Male
  Weight: 136.05 kg

DRUGS (1)
  1. VYVANSE [Suspect]
     Active Substance: LISDEXAMFETAMINE DIMESYLATE
     Indication: Binge eating
     Route: 065

REACTIONS (4)
  - Back pain [Recovering/Resolving]
  - Neck surgery [Recovering/Resolving]
  - Post concussion syndrome [Recovering/Resolving]
  - Inability to afford medication [Unknown]
